FAERS Safety Report 17507031 (Version 1)
Quarter: 2020Q1

REPORT INFORMATION
  Report Type: Spontaneous
  Country: JP (occurrence: JP)
  Receive Date: 20200306
  Receipt Date: 20200306
  Transmission Date: 20200409
  Serious: Yes (Hospitalization)
  Sender: FDA-Public Use
  Company Number: JP-TEVA-2020-JP-1196741

PATIENT
  Age: 72 Year
  Sex: Male

DRUGS (3)
  1. FOLINIC ACID [Suspect]
     Active Substance: LEUCOVORIN
     Indication: COLON CANCER STAGE II
     Dosage: 75 MG/BODY/DAY FOR 4 WEEKS, FOLLOWED BY A 1 WEEK REST PERIOD
     Route: 048
  2. NIFEDIPINE. [Concomitant]
     Active Substance: NIFEDIPINE
     Indication: HYPERTENSION
     Dosage: FROM 12 YEARS
     Route: 065
  3. TEGAFUR/URACIL [Suspect]
     Active Substance: TEGAFUR\URACIL
     Indication: COLON CANCER STAGE II
     Dosage: 500 MG/BODY/DAY FOR 4 WEEKS, FOLLOWED BY A 1 WEEK REST PERIOD
     Route: 048

REACTIONS (5)
  - Acute hepatic failure [Recovered/Resolved]
  - Disseminated intravascular coagulation [Unknown]
  - Ascites [Unknown]
  - Drug-induced liver injury [Recovered/Resolved]
  - Pleural effusion [Unknown]
